FAERS Safety Report 13937246 (Version 2)
Quarter: 2017Q3

REPORT INFORMATION
  Report Type: Report from Study
  Country: DE (occurrence: DE)
  Receive Date: 20170905
  Receipt Date: 20170905
  Transmission Date: 20171127
  Serious: Yes (Death)
  Sender: FDA-Public Use
  Company Number: DE-MYLANLABS-2017M1054246

PATIENT
  Age: 2 Year
  Sex: Female

DRUGS (10)
  1. CYTARABINE. [Suspect]
     Active Substance: CYTARABINE
     Dosage: 1 G/M2/12 HOURS ON DAYS 1-3 OF HAM CYCLE
     Route: 065
  2. IDARUBICIN [Suspect]
     Active Substance: IDARUBICIN
     Dosage: 5 MG/M2/DAY ON DAYS 3 AND 5 OF AI CYCLE
     Route: 065
  3. CYTARABINE. [Suspect]
     Active Substance: CYTARABINE
     Dosage: 100 MG/M2/12 HOURS ON DAYS 3-8 OF AIE CYCLE
     Route: 065
  4. IDARUBICIN [Suspect]
     Active Substance: IDARUBICIN
     Indication: MYELOID LEUKAEMIA
     Dosage: 8 MG/M2/DAY ON DAYS 3, 5 AND 7 OF AIE CYCLE
     Route: 065
  5. CYTARABINE. [Suspect]
     Active Substance: CYTARABINE
     Dosage: 500 MG/M2/DAY ON DAYS 1-4 OF AI CYCLE
     Route: 065
  6. CYTARABINE. [Suspect]
     Active Substance: CYTARABINE
     Route: 037
  7. CYTARABINE. [Suspect]
     Active Substance: CYTARABINE
     Indication: MYELOID LEUKAEMIA
     Dosage: 100 MG/M2/DAY ON DAYS 1-2 OF AIE CYCLE
     Route: 065
  8. ETOPOSIDE. [Suspect]
     Active Substance: ETOPOSIDE
     Indication: MYELOID LEUKAEMIA
     Dosage: 150 MG/M2/DAY ON DAYS 6-8 OF AIE CYCLE
     Route: 065
  9. CYTARABINE. [Suspect]
     Active Substance: CYTARABINE
     Dosage: 3 G/M2/12 HOURS ON DAYS 1-3 OF HA CYCLE
     Route: 065
  10. MITOXANTRONE [Suspect]
     Active Substance: MITOXANTRONE HYDROCHLORIDE
     Indication: MYELOID LEUKAEMIA
     Dosage: 7 MG/M2/DAY ON DAYS 3-4 OF HAM CYCLE
     Route: 065

REACTIONS (1)
  - Streptococcal sepsis [Fatal]
